FAERS Safety Report 14926457 (Version 1)
Quarter: 2018Q2

REPORT INFORMATION
  Report Type: Spontaneous
  Country: FR (occurrence: FR)
  Receive Date: 20180523
  Receipt Date: 20180523
  Transmission Date: 20180711
  Serious: Yes (Hospitalization)
  Sender: FDA-Public Use
  Company Number: FR-ROCHE-2127555

PATIENT
  Age: 78 Year
  Sex: Female
  Weight: 67 kg

DRUGS (15)
  1. CORDARONE [Suspect]
     Active Substance: AMIODARONE HYDROCHLORIDE
     Indication: ATRIAL FIBRILLATION
     Route: 048
     Dates: start: 20180428
  2. FUMARATE FERREUX [Concomitant]
     Route: 065
  3. CORDARONE [Suspect]
     Active Substance: AMIODARONE HYDROCHLORIDE
     Indication: ATRIAL FIBRILLATION
     Route: 048
     Dates: start: 20180420, end: 20180427
  4. CORTANCYL [Concomitant]
     Active Substance: PREDNISONE
     Route: 065
  5. ESOMEPRAZOLE [Concomitant]
     Active Substance: ESOMEPRAZOLE
     Route: 065
  6. CYMEVAN [Suspect]
     Active Substance: GANCICLOVIR
     Indication: CYTOMEGALOVIRUS COLITIS
     Dosage: 5MG/KG
     Route: 048
     Dates: start: 20180420
  7. ROSUVASTATINE [Concomitant]
     Active Substance: ROSUVASTATIN
     Route: 065
  8. AMLOR [Concomitant]
     Active Substance: AMLODIPINE BESYLATE
     Route: 065
  9. FOSAVANCE [Concomitant]
     Active Substance: ALENDRONATE SODIUM\CHOLECALCIFEROL
     Route: 065
  10. IXPRIM [Concomitant]
     Active Substance: ACETAMINOPHEN\TRAMADOL HYDROCHLORIDE
     Route: 065
  11. ACIDE FOLIQUE [Concomitant]
     Active Substance: FOLIC ACID
     Route: 065
  12. BROMAZEPAM [Concomitant]
     Active Substance: BROMAZEPAM
     Route: 065
  13. DIFFU K [Concomitant]
     Active Substance: POTASSIUM CHLORIDE
     Route: 065
  14. IRBESARTAN. [Concomitant]
     Active Substance: IRBESARTAN
     Route: 065
  15. LEVOTHYROX [Concomitant]
     Active Substance: LEVOTHYROXINE
     Route: 065

REACTIONS (4)
  - Gamma-glutamyltransferase increased [Recovering/Resolving]
  - Hepatitis [Recovering/Resolving]
  - Blood alkaline phosphatase increased [Recovering/Resolving]
  - Hepatic enzyme increased [Recovering/Resolving]

NARRATIVE: CASE EVENT DATE: 20180430
